FAERS Safety Report 7621128-9 (Version None)
Quarter: 2011Q3

REPORT INFORMATION
  Report Type: 
  Country: None (occurrence: None)
  Receive Date: 20110719
  Receipt Date: 20110714
  Transmission Date: 20111222
  Serious: Yes (Other)
  Sender: FDA-Public Use
  Company Number: US-PFIZER INC-2011159927

PATIENT
  Age: 59 Year
  Sex: Male
  Weight: 94.785 kg

DRUGS (1)
  1. PRISTIQ [Suspect]
     Indication: DEPRESSION
     Dosage: 100 MG, 1X/DAY
     Route: 048
     Dates: start: 20080101, end: 20101212

REACTIONS (13)
  - CONFUSIONAL STATE [None]
  - DISTURBANCE IN ATTENTION [None]
  - ABNORMAL DREAMS [None]
  - DRUG INEFFECTIVE [None]
  - WITHDRAWAL SYNDROME [None]
  - FATIGUE [None]
  - HYPERHIDROSIS [None]
  - IRRITABILITY [None]
  - TINNITUS [None]
  - NAUSEA [None]
  - DIZZINESS [None]
  - PARAESTHESIA [None]
  - HEADACHE [None]
